FAERS Safety Report 4595799-8 (Version None)
Quarter: 2005Q1

REPORT INFORMATION
  Report Type: 
  Country: None (occurrence: None)
  Receive Date: 20050224
  Receipt Date: 20050224
  Transmission Date: 20050727
  Serious: Yes (Hospitalization)
  Sender: FDA-Public Use
  Company Number: None

PATIENT
  Sex: Male
  Weight: 95.9 kg

DRUGS (18)
  1. PREVACID [Suspect]
     Indication: GASTROOESOPHAGEAL REFLUX DISEASE
     Dosage: 15 MG BID ORAL
     Route: 048
     Dates: start: 20050220, end: 20050222
  2. LEVAQUIN [Concomitant]
  3. ASPIRIN [Concomitant]
  4. COENZYME [Concomitant]
  5. GLYBURIDE [Concomitant]
  6. GUAIFENSIN LA [Concomitant]
  7. NOVOLIN [Concomitant]
  8. REGULAR INSULIN [Concomitant]
  9. IMDUR [Concomitant]
  10. XOPENEX [Concomitant]
  11. METOPROLOL [Concomitant]
  12. ZOCOR [Concomitant]
  13. APAP TAB [Concomitant]
  14. TESSOLON PEARLES [Concomitant]
  15. TUSSIONEX [Concomitant]
  16. AMBIEN [Concomitant]
  17. HEPARIN [Concomitant]
  18. INTERELIN GTT [Concomitant]

REACTIONS (1)
  - THROMBOCYTOPENIA [None]
